FAERS Safety Report 7559651-8 (Version None)
Quarter: 2011Q2

REPORT INFORMATION
  Report Type: 
  Country: None (occurrence: None)
  Receive Date: 20110621
  Receipt Date: 20110606
  Transmission Date: 20111010
  Serious: Yes (Death)
  Sender: FDA-Public Use
  Company Number: JP-ROCHE-721582

PATIENT
  Age: 75 Year
  Sex: Female

DRUGS (5)
  1. FLUOROURACIL [Concomitant]
     Dosage: DOSAGE IS UNCERTAIN
     Route: 041
  2. FLUOROURACIL [Concomitant]
     Dosage: DOSAGE IS UNCERTAIN. FORM : INTRAVENOUS BOLUS.
     Route: 040
  3. OXALIPLATIN [Concomitant]
     Dosage: DOSAGE IS UNCERTAIN.
     Route: 041
  4. AVASTIN [Suspect]
     Indication: COLON CANCER METASTATIC
     Dosage: UNCERTAIN DOSSAGE AND TEN ODD TIMES
     Route: 041
  5. LEUCOVORIN CALCIUM [Concomitant]
     Dosage: DOSAGE IS UNCERTAIN.
     Route: 041

REACTIONS (4)
  - URTICARIA [None]
  - PHARYNGEAL OEDEMA [None]
  - DISEASE PROGRESSION [None]
  - PRURITUS [None]
